FAERS Safety Report 5601298-4 (Version None)
Quarter: 2008Q1

REPORT INFORMATION
  Report Type: 
  Country: None (occurrence: None)
  Receive Date: 20080124
  Receipt Date: 20080121
  Transmission Date: 20080703
  Serious: Yes (Hospitalization)
  Sender: FDA-Public Use
  Company Number: B0502127A

PATIENT
  Age: 71 Year
  Sex: Male
  Weight: 57 kg

DRUGS (20)
  1. VALTREX [Suspect]
     Indication: HERPES ZOSTER
     Dosage: 1000MG THREE TIMES PER DAY
     Route: 048
     Dates: start: 20071217, end: 20071220
  2. LAXOBERON [Concomitant]
     Indication: CONSTIPATION
     Route: 048
     Dates: start: 20050602
  3. HUMALOG MIX [Concomitant]
     Route: 058
     Dates: start: 20070402, end: 20071220
  4. ADALAT [Concomitant]
     Indication: HYPERTENSION
     Route: 048
     Dates: start: 20020608, end: 20050731
  5. PLETAL [Concomitant]
     Indication: CEREBRAL INFARCTION
     Dosage: 50MG PER DAY
     Route: 048
     Dates: start: 20050328, end: 20071220
  6. PAXIL [Concomitant]
     Indication: INSOMNIA
     Dosage: 10MG PER DAY
     Route: 048
     Dates: start: 20050328, end: 20071220
  7. ZONISAMIDE [Concomitant]
     Indication: EPILEPSY
     Dosage: 200MG PER DAY
     Route: 048
     Dates: start: 20050218, end: 20071220
  8. MARZULENE-S [Concomitant]
     Indication: DRUG USE FOR UNKNOWN INDICATION
     Dosage: 1G PER DAY
     Route: 048
     Dates: start: 20050218, end: 20071220
  9. MAGNESIUM OXIDE [Concomitant]
     Indication: CONSTIPATION
     Dosage: 1.8G PER DAY
     Route: 048
     Dates: start: 20070619, end: 20071220
  10. HUMALOG MIX [Concomitant]
     Route: 058
     Dates: start: 20071228
  11. NOVOLIN R [Concomitant]
     Route: 058
     Dates: start: 20071221, end: 20071227
  12. ADALAT [Concomitant]
     Dosage: 20MG PER DAY
     Route: 048
     Dates: start: 20071112, end: 20071220
  13. ADALAT [Concomitant]
     Dosage: 20MG PER DAY
     Route: 048
     Dates: start: 20071224
  14. ADALAT [Concomitant]
     Indication: HYPERTENSION
     Route: 048
     Dates: start: 20050801, end: 20071111
  15. PLETAL [Concomitant]
     Dosage: 50MG PER DAY
     Route: 048
     Dates: start: 20071225
  16. PAXIL [Concomitant]
     Dosage: 10MG PER DAY
     Route: 048
     Dates: start: 20071225
  17. ZONISAMIDE [Concomitant]
     Dosage: 200MG PER DAY
     Route: 048
     Dates: start: 20071225
  18. MARZULENE-S [Concomitant]
     Dosage: 1G PER DAY
     Route: 048
     Dates: start: 20071225
  19. MAGNESIUM OXIDE [Concomitant]
     Dosage: 1.8G PER DAY
     Route: 048
     Dates: start: 20071225
  20. ARASENA-A [Concomitant]
     Indication: HERPES ZOSTER
     Route: 061
     Dates: start: 20071217, end: 20071228

REACTIONS (4)
  - ALTERED STATE OF CONSCIOUSNESS [None]
  - EATING DISORDER [None]
  - OLIGURIA [None]
  - RENAL FAILURE ACUTE [None]
